FAERS Safety Report 15823617 (Version 5)
Quarter: 2019Q2

REPORT INFORMATION
  Report Type: Report from Study
  Country: US (occurrence: US)
  Receive Date: 20190114
  Receipt Date: 20190402
  Transmission Date: 20190711
  Serious: Yes (Hospitalization, Other)
  Sender: FDA-Public Use
  Company Number: US-ACTELION-A-NJ2019-184490

PATIENT
  Sex: Female
  Weight: 70.3 kg

DRUGS (3)
  1. TYVASO [Suspect]
     Active Substance: TREPROSTINIL
     Dosage: 54 MCG, QID
     Route: 055
     Dates: start: 20181006
  2. TYVASO [Suspect]
     Active Substance: TREPROSTINIL
     Indication: PULMONARY ARTERIAL HYPERTENSION
     Dosage: UNK
     Route: 055
  3. OPSUMIT [Suspect]
     Active Substance: MACITENTAN
     Indication: PULMONARY ARTERIAL HYPERTENSION
     Dosage: 10 MG, QD
     Route: 048
     Dates: start: 20190104

REACTIONS (11)
  - Dyspnoea [Recovered/Resolved]
  - Decreased appetite [Unknown]
  - Feeling cold [Unknown]
  - Pulmonary oedema [Unknown]
  - Dizziness [Unknown]
  - Ascites [Unknown]
  - Hypotension [Unknown]
  - Hepatic cancer [Unknown]
  - Headache [Unknown]
  - Asthenia [Unknown]
  - Somnolence [Recovering/Resolving]
